FAERS Safety Report 6006351-1 (Version None)
Quarter: 2008Q4

REPORT INFORMATION
  Report Type: 
  Country: None (occurrence: None)
  Receive Date: 20081217
  Receipt Date: 20081210
  Transmission Date: 20090506
  Serious: Yes (Death, Hospitalization)
  Sender: FDA-Public Use
  Company Number: BE-ELI_LILLY_AND_COMPANY-BE200806000452

PATIENT
  Sex: Female
  Weight: 97 kg

DRUGS (9)
  1. BYETTA [Suspect]
     Indication: DIABETES MELLITUS INADEQUATE CONTROL
     Dosage: 10 UG, 2/D
     Route: 058
     Dates: start: 20080320, end: 20080522
  2. METFORMIN HCL [Concomitant]
     Dosage: 850 MG, 3/D
     Route: 065
  3. AMARYL [Concomitant]
     Dosage: UNK, UNKNOWN
     Route: 065
  4. CETRIZINE [Concomitant]
     Dosage: UNK, UNKNOWN
     Route: 065
  5. FERRICURE [Concomitant]
     Dosage: UNK, UNKNOWN
     Route: 065
  6. SINEQUAN [Concomitant]
     Dosage: UNK, UNKNOWN
     Route: 065
  7. SERENACE [Concomitant]
     Dosage: UNK, UNKNOWN
     Route: 065
  8. FORADIL [Concomitant]
     Dosage: UNK, UNKNOWN
     Route: 065
  9. DIURETICS [Concomitant]
     Dosage: UNK, UNKNOWN
     Route: 065

REACTIONS (1)
  - MYELODYSPLASTIC SYNDROME [None]
